FAERS Safety Report 24458045 (Version 1)
Quarter: 2024Q4

REPORT INFORMATION
  Report Type: Report from Study
  Country: US (occurrence: US)
  Receive Date: 20241018
  Receipt Date: 20241018
  Transmission Date: 20250115
  Serious: No
  Sender: ROCHE
  Company Number: US-ROCHE-3002829

PATIENT
  Age: 41 Year
  Sex: Male

DRUGS (4)
  1. ACTIVASE [Suspect]
     Active Substance: ALTEPLASE
     Indication: Cerebral infarction
     Dosage: 100 MG/ 100 ML AND DATE OF SERVICE: 06/DEC/2021, 06/DEC/2022, 24/AUG/2023
     Route: 065
  2. ACTIVASE [Suspect]
     Active Substance: ALTEPLASE
     Indication: Cerebral artery stenosis
  3. ACTIVASE [Suspect]
     Active Substance: ALTEPLASE
     Indication: Pulmonary embolism
  4. ACTIVASE [Suspect]
     Active Substance: ALTEPLASE
     Indication: Cor pulmonale acute

REACTIONS (2)
  - Off label use [Unknown]
  - No adverse event [Unknown]
